FAERS Safety Report 15526644 (Version 2)
Quarter: 2018Q4

REPORT INFORMATION
  Report Type: Spontaneous
  Country: FR (occurrence: FR)
  Receive Date: 20181018
  Receipt Date: 20181119
  Transmission Date: 20190205
  Serious: Yes (Hospitalization)
  Sender: FDA-Public Use
  Company Number: FR-TEVA-2018-FR-965813

PATIENT
  Age: 47 Year
  Sex: Female
  Weight: 57 kg

DRUGS (5)
  1. ESTREVA, COMPRIM? S?CABLE [Suspect]
     Active Substance: ESTRADIOL
     Indication: HIRSUTISM
     Route: 048
     Dates: start: 1998
  2. ANDROCUR 50 MG, COMPRIM? [Suspect]
     Active Substance: CYPROTERONE ACETATE
     Indication: MIGRAINE
  3. ANDROCUR 50 MG, COMPRIM? [Suspect]
     Active Substance: CYPROTERONE ACETATE
     Indication: HIRSUTISM
     Route: 048
     Dates: start: 1998
  4. PRITOR 40 MG, COMPRIM? [Concomitant]
  5. ESTREVA, COMPRIM? S?CABLE [Suspect]
     Active Substance: ESTRADIOL
     Indication: MIGRAINE

REACTIONS (1)
  - Meningioma [Not Recovered/Not Resolved]

NARRATIVE: CASE EVENT DATE: 201808
